FAERS Safety Report 16581998 (Version 1)
Quarter: 2019Q3

REPORT INFORMATION
  Report Type: Spontaneous
  Country: GB (occurrence: GB)
  Receive Date: 20190717
  Receipt Date: 20190717
  Transmission Date: 20191004
  Serious: Yes (Other)
  Sender: FDA-Public Use
  Company Number: GB-AUROBINDO-AUR-APL-2019-040195

PATIENT

DRUGS (2)
  1. CO-AMOXICLAV [Suspect]
     Active Substance: AMOXICILLIN\CLAVULANATE POTASSIUM
     Indication: LOWER RESPIRATORY TRACT INFECTION
     Dosage: UNK, 250MG/62MG/5ML
     Route: 065
     Dates: start: 20190121
  2. CLARITHROMYCIN. [Suspect]
     Active Substance: CLARITHROMYCIN
     Indication: PRODUCT USED FOR UNKNOWN INDICATION
     Dosage: UNK
     Route: 002
     Dates: start: 20190122, end: 20190123

REACTIONS (2)
  - Swelling of eyelid [Unknown]
  - Rash morbilliform [Unknown]

NARRATIVE: CASE EVENT DATE: 20190121
